FAERS Safety Report 25601418 (Version 1)
Quarter: 2025Q3

REPORT INFORMATION
  Report Type: Spontaneous
  Country: EU (occurrence: EU)
  Receive Date: 20250724
  Receipt Date: 20250724
  Transmission Date: 20251021
  Serious: Yes (Other)
  Sender: ABBVIE
  Company Number: EU-FERRINGPH-2025FE03762

PATIENT
  Age: 90 Year
  Sex: Female

DRUGS (4)
  1. MESALAMINE [Suspect]
     Active Substance: MESALAMINE
     Indication: Product used for unknown indication
     Route: 065
  2. ENALAPRIL MALEATE [Concomitant]
     Active Substance: ENALAPRIL MALEATE
     Indication: Product used for unknown indication
  3. FUROSEMIDE [Concomitant]
     Active Substance: FUROSEMIDE
     Indication: Product used for unknown indication
  4. METOPROLOL [Concomitant]
     Active Substance: METOPROLOL
     Indication: Product used for unknown indication
     Route: 065

REACTIONS (7)
  - Nephrotic syndrome [Recovering/Resolving]
  - Proteinuria [Recovering/Resolving]
  - Oedema [Recovering/Resolving]
  - Hyponatraemia [Recovering/Resolving]
  - Glomerulonephritis membranous [Unknown]
  - Hypoproteinaemia [Recovering/Resolving]
  - Protein deficiency [Recovering/Resolving]
